FAERS Safety Report 4522391-3 (Version None)
Quarter: 2004Q4

REPORT INFORMATION
  Report Type: 
  Country: None (occurrence: None)
  Receive Date: 20041209
  Receipt Date: 20041201
  Transmission Date: 20050328
  Serious: Yes (Hospitalization)
  Sender: FDA-Public Use
  Company Number: PHBS2004HU16296

PATIENT
  Age: 31 Year
  Sex: Female

DRUGS (2)
  1. INDOMETHACIN [Concomitant]
     Dosage: UNK, PRN
  2. DICLOFENAC [Suspect]
     Indication: POLYARTHRITIS
     Dosage: 100 MG, UNK

REACTIONS (24)
  - ANTINUCLEAR ANTIBODY POSITIVE [None]
  - ARTHRALGIA [None]
  - BLOOD CREATINE PHOSPHOKINASE INCREASED [None]
  - CSF CELL COUNT ABNORMAL [None]
  - CSF GLUCOSE DECREASED [None]
  - CSF PROTEIN INCREASED [None]
  - DIZZINESS [None]
  - FATIGUE [None]
  - HEADACHE [None]
  - HERPES ZOSTER [None]
  - MENINGISM [None]
  - MIXED CONNECTIVE TISSUE DISEASE [None]
  - MUSCULOSKELETAL STIFFNESS [None]
  - MYALGIA [None]
  - MYOSITIS [None]
  - OESOPHAGEAL DILATATION [None]
  - PARESIS [None]
  - PHOTOPHOBIA [None]
  - POLYARTHRITIS [None]
  - PYREXIA [None]
  - RASH ERYTHEMATOUS [None]
  - RASH MACULAR [None]
  - SOMNOLENCE [None]
  - WHITE BLOOD CELL COUNT DECREASED [None]
